FAERS Safety Report 16726521 (Version 2)
Quarter: 2019Q4

REPORT INFORMATION
  Report Type: Spontaneous
  Country: US (occurrence: US)
  Receive Date: 20190821
  Receipt Date: 20191031
  Transmission Date: 20200122
  Serious: No
  Sender: FDA-Public Use
  Company Number: US-BRISTOL-MYERS SQUIBB COMPANY-BMS-2019-081990

PATIENT
  Sex: Male

DRUGS (2)
  1. BABY ASPIRIN [Concomitant]
     Active Substance: ASPIRIN
     Indication: PRODUCT USED FOR UNKNOWN INDICATION
     Dosage: UNK
     Route: 065
  2. OPDIVO [Suspect]
     Active Substance: NIVOLUMAB
     Indication: PRODUCT USED FOR UNKNOWN INDICATION
     Dosage: ^180 SOMETHING^TWICE A WEEK AND THEN TO ONCE A MONTH^
     Route: 042
     Dates: start: 2019, end: 2019

REACTIONS (3)
  - Vision blurred [Unknown]
  - Constipation [Unknown]
  - Renal pain [Unknown]
